FAERS Safety Report 11773046 (Version 2)
Quarter: 2015Q4

REPORT INFORMATION
  Report Type: Spontaneous
  Country: US (occurrence: US)
  Receive Date: 20151124
  Receipt Date: 20151125
  Transmission Date: 20160304
  Serious: No
  Sender: FDA-Public Use
  Company Number: US-PFIZER INC-2015386398

PATIENT
  Age: 78 Year
  Sex: Female
  Weight: 62 kg

DRUGS (2)
  1. LYRICA [Suspect]
     Active Substance: PREGABALIN
     Indication: FACET JOINT SYNDROME
     Dosage: 75 MG, 2X/DAY
     Dates: start: 201510
  2. LYRICA [Suspect]
     Active Substance: PREGABALIN
     Indication: BACK DISORDER
     Dosage: 50 MG, 2X/DAY
     Route: 048
     Dates: start: 201505

REACTIONS (1)
  - Drug ineffective [Recovering/Resolving]
